FAERS Safety Report 6287353-7 (Version None)
Quarter: 2009Q3

REPORT INFORMATION
  Report Type: 
  Country: None (occurrence: None)
  Receive Date: 20090728
  Receipt Date: 20090724
  Transmission Date: 20100115
  Serious: No
  Sender: FDA-Public Use
  Company Number: US-B.I. PHARMACEUTICALS,INC./RIDGEFIELD-2009-BP-08848BP

PATIENT
  Sex: Female

DRUGS (4)
  1. SPIRIVA [Suspect]
     Indication: CHRONIC OBSTRUCTIVE PULMONARY DISEASE
     Dates: start: 20050101
  2. ADVAIR HFA [Concomitant]
     Indication: DYSPNOEA
  3. ALBUTEROL [Concomitant]
     Indication: DYSPNOEA
  4. ATROVENT [Concomitant]
     Indication: DYSPNOEA

REACTIONS (1)
  - VISUAL IMPAIRMENT [None]
